FAERS Safety Report 8867184 (Version 1)
Quarter: 2012Q4

REPORT INFORMATION
  Report Type: 
  Country: US (occurrence: US)
  Receive Date: 20121025
  Receipt Date: 20121025
  Transmission Date: 20130627
  Serious: No
  Sender: FDA-Public Use
  Company Number: US-AMGEN-USASP2012015179

PATIENT
  Sex: Female
  Weight: 73.47 kg

DRUGS (13)
  1. ENBREL [Suspect]
     Indication: PRODUCT USED FOR UNKNOWN INDICATION
     Dosage: 50 mg, qwk
     Route: 058
  2. LANTUS [Concomitant]
  3. HUMALOG [Concomitant]
  4. ASA [Concomitant]
     Dosage: 81 mg, UNK
  5. LISINOPRIL [Concomitant]
     Dosage: 40 mg, UNK
  6. ZETIA [Concomitant]
     Dosage: 10 mg, UNK
  7. CRESTOR [Concomitant]
     Dosage: 10 mg, UNK
  8. COLCRYS [Concomitant]
     Dosage: 0.6 mg, UNK
  9. HYDROCHLOROTH [Concomitant]
     Dosage: 25 mg, UNK
  10. PRILOSEC                           /00661201/ [Concomitant]
     Dosage: 10 mg, UNK
  11. VITAMIN D /00107901/ [Concomitant]
     Dosage: 50000 IU, UNK
  12. MULTIPLE VITAMINS [Concomitant]
  13. AMLODIPINE [Concomitant]
     Dosage: 10 mg, UNK

REACTIONS (1)
  - Urinary tract infection [Unknown]
